FAERS Safety Report 16170156 (Version 1)
Quarter: 2019Q2

REPORT INFORMATION
  Report Type: Spontaneous
  Country: ES (occurrence: ES)
  Receive Date: 20190408
  Receipt Date: 20190408
  Transmission Date: 20190711
  Serious: Yes (Hospitalization)
  Sender: FDA-Public Use
  Company Number: ES-PFIZER INC-2019142090

PATIENT
  Age: 80 Year
  Sex: Male

DRUGS (3)
  1. METAMIZOLE [Concomitant]
     Active Substance: METAMIZOLE
     Dosage: UNK UNK, 3X/DAY (0,4 G EVERY 8H)
     Route: 042
     Dates: start: 20180406, end: 20180515
  2. LINEZOLID. [Suspect]
     Active Substance: LINEZOLID
     Indication: DEVICE RELATED INFECTION
     Dosage: 600 MG, 2X/DAY (600MG EVERY 12H)
     Route: 048
     Dates: start: 20180507, end: 20180515
  3. DOXAZOSIN [Concomitant]
     Active Substance: DOXAZOSIN\DOXAZOSIN MESYLATE
     Dosage: 4 MG, 1X/DAY  (4 MG DAILY)
     Route: 048
     Dates: start: 20180406, end: 20180515

REACTIONS (2)
  - Lactic acidosis [Recovered/Resolved]
  - Acute kidney injury [Recovered/Resolved]

NARRATIVE: CASE EVENT DATE: 20180514
